FAERS Safety Report 4927845-3 (Version None)
Quarter: 2006Q1

REPORT INFORMATION
  Report Type: 
  Country: None (occurrence: None)
  Receive Date: 20060228
  Receipt Date: 20050711
  Transmission Date: 20060701
  Serious: Yes (Other)
  Sender: FDA-Public Use
  Company Number: BR-GLAXOSMITHKLINE-A0566173B

PATIENT
  Sex: Female
  Weight: 2.4 kg

DRUGS (2)
  1. AEROLIN [Suspect]
     Dosage: 5PUFF PER DAY
     Dates: start: 20030101
  2. NAPHAZOLINE HCL [Concomitant]

REACTIONS (4)
  - AMNIOTIC FLUID VOLUME DECREASED [None]
  - DRUG EXPOSURE DURING PREGNANCY [None]
  - PREMATURE BABY [None]
  - RESPIRATORY DISORDER [None]
